FAERS Safety Report 9480435 (Version 1)
Quarter: 2013Q3

REPORT INFORMATION
  Report Type: Spontaneous
  Country: US (occurrence: US)
  Receive Date: 20130828
  Receipt Date: 20130828
  Transmission Date: 20140515
  Serious: Yes (Death)
  Sender: FDA-Public Use
  Company Number: US-AMGEN-KDL105947

PATIENT
  Age: 56 Year
  Sex: Female

DRUGS (5)
  1. ENBREL [Suspect]
     Indication: RHEUMATOID ARTHRITIS
     Dosage: UNK UNK, UNK
     Route: 065
     Dates: start: 20030602, end: 20041123
  2. PREDNISONE [Concomitant]
  3. METHOTREXATE [Concomitant]
  4. HYDROCORTISONE [Concomitant]
  5. INSULIN [Concomitant]

REACTIONS (1)
  - Death [Fatal]
